FAERS Safety Report 9195804 (Version 1)
Quarter: 2013Q1

REPORT INFORMATION
  Report Type: Spontaneous
  Country: US (occurrence: None)
  Receive Date: 20130319
  Receipt Date: 20130319
  Transmission Date: 20140127
  Serious: Yes (Other)
  Sender: FDA-Public Use
  Company Number: 2013035049

PATIENT
  Sex: Female

DRUGS (1)
  1. VIVAGLOBIN [Suspect]
     Indication: IMMUNODEFICIENCY COMMON VARIABLE
     Dosage: (FOR 2 CONSECUTIVE WEEKS)
     Route: 058
     Dates: start: 20080430

REACTIONS (3)
  - Sepsis [None]
  - Cholangitis [None]
  - Cholelithiasis [None]
